FAERS Safety Report 13817718 (Version 1)
Quarter: 2017Q3

REPORT INFORMATION
  Report Type: Spontaneous
  Country: US (occurrence: US)
  Receive Date: 20170731
  Receipt Date: 20170731
  Transmission Date: 20171127
  Serious: No
  Sender: FDA-Public Use
  Company Number: US-TEIKOKU PHARMA USA-TPU2017-00247

PATIENT
  Age: 66 Year
  Sex: Female
  Weight: 127.12 kg

DRUGS (2)
  1. DULOXETINE. [Suspect]
     Active Substance: DULOXETINE
     Indication: PAIN
     Route: 048
     Dates: start: 20170419, end: 20170419
  2. LIDOCAINE PATCH [Suspect]
     Active Substance: LIDOCAINE
     Indication: WOUND COMPLICATION
     Dates: start: 20170419, end: 20170419

REACTIONS (4)
  - Nausea [Not Recovered/Not Resolved]
  - Vomiting [Unknown]
  - Wrong technique in product usage process [Recovered/Resolved]
  - Malaise [Unknown]

NARRATIVE: CASE EVENT DATE: 20170419
